FAERS Safety Report 14783569 (Version 1)
Quarter: 2018Q2

REPORT INFORMATION
  Report Type: Spontaneous
  Country: US (occurrence: US)
  Receive Date: 20180420
  Receipt Date: 20180420
  Transmission Date: 20180711
  Serious: Yes (Other)
  Sender: FDA-Public Use
  Company Number: US-ENDO PHARMACEUTICALS INC-2018-027161

PATIENT
  Age: 46 Year
  Sex: Male
  Weight: 86.17 kg

DRUGS (4)
  1. XIAFLEX [Suspect]
     Active Substance: COLLAGENASE CLOSTRIDIUM HISTOLYTICUM
     Indication: PEYRONIE^S DISEASE
     Dosage: UNK MG, FIRST CYCLE SECOND INJECTION, UNKNOWN
     Route: 026
     Dates: start: 20180302
  2. XIAFLEX [Suspect]
     Active Substance: COLLAGENASE CLOSTRIDIUM HISTOLYTICUM
     Dosage: UNK MG, FIRST CYCLE FIRST INJECTION, UNKNOWN
     Route: 026
     Dates: start: 20180228
  3. XIAFLEX [Suspect]
     Active Substance: COLLAGENASE CLOSTRIDIUM HISTOLYTICUM
     Dosage: UNK MG, SECOND CYCLE FIRST INJECTION, UNKNOWN
     Route: 026
     Dates: start: 20180410
  4. ZANTAC [Concomitant]
     Active Substance: RANITIDINE HYDROCHLORIDE
     Indication: GASTROOESOPHAGEAL REFLUX DISEASE
     Dosage: UNK UNKNOWN, DAILY
     Route: 065

REACTIONS (7)
  - Penile swelling [Not Recovered/Not Resolved]
  - Fracture of penis [Recovered/Resolved]
  - Penile pain [Not Recovered/Not Resolved]
  - Drug ineffective [Not Recovered/Not Resolved]
  - Corpora cavernosa surgery [Recovered/Resolved]
  - Inappropriate schedule of drug administration [Not Recovered/Not Resolved]
  - Penile haematoma [Not Recovered/Not Resolved]

NARRATIVE: CASE EVENT DATE: 2018
